FAERS Safety Report 4477627-4 (Version None)
Quarter: 2004Q4

REPORT INFORMATION
  Report Type: 
  Country: None (occurrence: None)
  Receive Date: 20041014
  Receipt Date: 20041007
  Transmission Date: 20050328
  Serious: Yes (Life-Threatening, Hospitalization)
  Sender: FDA-Public Use
  Company Number: US-2004-031056

PATIENT
  Age: 52 Year
  Sex: Female
  Weight: 104.3 kg

DRUGS (2)
  1. MAGNEVIST [Suspect]
     Indication: NUCLEAR MAGNETIC RESONANCE IMAGING
     Dosage: 15 ML, 1 DOSE, INTRAVENOUS
     Route: 042
     Dates: start: 20040827, end: 20040827
  2. PREDNISONE [Concomitant]

REACTIONS (2)
  - SUPRAVENTRICULAR TACHYCARDIA [None]
  - SYNCOPE VASOVAGAL [None]
